FAERS Safety Report 19270045 (Version 1)
Quarter: 2021Q2

REPORT INFORMATION
  Report Type: Spontaneous
  Country: CN (occurrence: CN)
  Receive Date: 20210518
  Receipt Date: 20210518
  Transmission Date: 20210717
  Serious: Yes (Other)
  Sender: FDA-Public Use
  Company Number: CN-PFIZER INC-2021517579

PATIENT
  Age: 39 Year
  Sex: Female
  Weight: 50 kg

DRUGS (2)
  1. AESCUVEN FORTE [Concomitant]
     Active Substance: HERBALS
     Indication: MENISCUS INJURY
     Dosage: 1.000 DF, 2X/DAY
     Route: 048
     Dates: start: 20210506, end: 20210507
  2. CELECOXIB. [Suspect]
     Active Substance: CELECOXIB
     Indication: PAIN
     Dosage: 1.000 DF, 1X/DAY
     Route: 048
     Dates: start: 20210506, end: 20210507

REACTIONS (5)
  - Rash [Recovering/Resolving]
  - Rash erythematous [Recovering/Resolving]
  - Drug hypersensitivity [Recovering/Resolving]
  - Pruritus [Recovering/Resolving]
  - Feeling abnormal [Unknown]

NARRATIVE: CASE EVENT DATE: 20210507
